FAERS Safety Report 16101086 (Version 4)
Quarter: 2020Q1

REPORT INFORMATION
  Report Type: Report from Study
  Country: US (occurrence: US)
  Receive Date: 20190321
  Receipt Date: 20200312
  Transmission Date: 20200409
  Serious: Yes (Other)
  Sender: FDA-Public Use
  Company Number: PHEH2019US011964

PATIENT
  Sex: Female

DRUGS (1)
  1. GILENYA [Suspect]
     Active Substance: FINGOLIMOD HYDROCHLORIDE
     Indication: MULTIPLE SCLEROSIS
     Dosage: 0.5 MG, QD
     Route: 048
     Dates: start: 20190117

REACTIONS (18)
  - Feeling hot [Unknown]
  - Blood pressure increased [Unknown]
  - Vision blurred [Unknown]
  - Hypoaesthesia [Unknown]
  - Multiple sclerosis [Unknown]
  - Dry mouth [Unknown]
  - Amnesia [Not Recovered/Not Resolved]
  - Thyroid hormones decreased [Unknown]
  - Headache [Unknown]
  - Taste disorder [Unknown]
  - Asthenia [Not Recovered/Not Resolved]
  - Balance disorder [Recovering/Resolving]
  - Nausea [Unknown]
  - Weight decreased [Unknown]
  - Multiple sclerosis relapse [Unknown]
  - Muscle spasms [Unknown]
  - Grip strength decreased [Unknown]
  - Stress [Unknown]
